FAERS Safety Report 21304716 (Version 1)
Quarter: 2022Q3

REPORT INFORMATION
  Report Type: Spontaneous
  Country: US (occurrence: None)
  Receive Date: 20220907
  Receipt Date: 20220907
  Transmission Date: 20221026
  Serious: No
  Sender: FDA-Public Use
  Company Number: US-ARIS GLOBAL-202109-1615

PATIENT
  Sex: Female

DRUGS (18)
  1. OXERVATE [Suspect]
     Active Substance: CENEGERMIN-BKBJ
     Indication: Neurotrophic keratopathy
     Route: 047
     Dates: start: 20210803
  2. FERROCITE [Concomitant]
     Active Substance: FERROUS FUMARATE
  3. JANUVIA [Concomitant]
     Active Substance: SITAGLIPTIN PHOSPHATE
  4. TRIAMCINOLONE ACETONIDE [Concomitant]
     Active Substance: TRIAMCINOLONE ACETONIDE
  5. TRUE METRIX AIR GLUCOSE METER [Concomitant]
  6. FLUAD QUAD [Concomitant]
  7. GUAIFENESIN [Concomitant]
     Active Substance: GUAIFENESIN
  8. TIMOLOL MALEATE [Concomitant]
     Active Substance: TIMOLOL MALEATE
  9. GLIMEPIRIDE [Concomitant]
     Active Substance: GLIMEPIRIDE
  10. LEVOTHYROXINE [Concomitant]
     Active Substance: LEVOTHYROXINE
  11. CERTAVITE-ANTIOXIDANT [Concomitant]
  12. LASIX [Concomitant]
     Active Substance: FUROSEMIDE
  13. AMLODIPINE AND ATORVASTATIN [Concomitant]
     Active Substance: AMLODIPINE BESYLATE\ATORVASTATIN CALCIUM
  14. CLONIDINE [Concomitant]
     Active Substance: CLONIDINE
     Dosage: 0.1MG/24HR PATCH
  15. VITAMIN D3 [Concomitant]
     Active Substance: CHOLECALCIFEROL
     Dosage: 10(400)/ML
  16. FLUTICASONE PROPIONATE [Concomitant]
     Active Substance: FLUTICASONE PROPIONATE
  17. ELIQUIS [Concomitant]
     Active Substance: APIXABAN
  18. LACTOBACILLUS ACIDOPHILUS [Concomitant]
     Active Substance: LACTOBACILLUS ACIDOPHILUS
     Dosage: 1 MM CELLS

REACTIONS (1)
  - Eye pain [Unknown]
